FAERS Safety Report 4432378-7 (Version None)
Quarter: 2004Q3

REPORT INFORMATION
  Report Type: 
  Country: None (occurrence: None)
  Receive Date: 20040825
  Receipt Date: 20040819
  Transmission Date: 20050211
  Serious: Yes (Other)
  Sender: FDA-Public Use
  Company Number: US-GLAXOSMITHKLINE-A0522795A

PATIENT
  Age: 26 Year
  Sex: Female

DRUGS (7)
  1. WELLBUTRIN [Suspect]
     Dosage: 150MG TWICE PER DAY
     Route: 048
     Dates: start: 20020101, end: 20040101
  2. BUPROPION HCL [Suspect]
     Dosage: 150MG TWICE PER DAY
     Route: 048
     Dates: start: 20040601, end: 20040801
  3. ALBUTEROL [Concomitant]
  4. LEXAPRO [Concomitant]
  5. SYNTHROID [Concomitant]
  6. VIOXX [Concomitant]
  7. PROTONIX [Concomitant]

REACTIONS (6)
  - DEPRESSED MOOD [None]
  - EAR PAIN [None]
  - HEADACHE [None]
  - NECK PAIN [None]
  - PHOTOPHOBIA [None]
  - SUICIDAL IDEATION [None]
